FAERS Safety Report 7984079-6 (Version None)
Quarter: 2011Q4

REPORT INFORMATION
  Report Type: 
  Country: None (occurrence: None)
  Receive Date: 20111216
  Receipt Date: 20111214
  Transmission Date: 20120403
  Serious: No
  Sender: FDA-Public Use
  Company Number: US-PFIZER INC-2011304821

PATIENT
  Sex: Female

DRUGS (1)
  1. CELEBREX [Suspect]
     Indication: PERIARTHRITIS
     Dosage: UNK
     Dates: start: 20111213

REACTIONS (2)
  - FEELING HOT [None]
  - ERYTHEMA [None]
